FAERS Safety Report 16966594 (Version 2)
Quarter: 2019Q4

REPORT INFORMATION
  Report Type: Spontaneous
  Country: JP (occurrence: JP)
  Receive Date: 20191028
  Receipt Date: 20191118
  Transmission Date: 20200122
  Serious: Yes (Hospitalization, Other)
  Sender: FDA-Public Use
  Company Number: JP-GILEAD-2019-0434423

PATIENT
  Age: 75 Year
  Sex: Male

DRUGS (19)
  1. LIVACT [AMINO ACIDS NOS] [Concomitant]
     Indication: HEPATITIS C
  2. LIVACT [AMINO ACIDS NOS] [Concomitant]
     Indication: HEPATIC CIRRHOSIS
  3. ALBUMIN [Concomitant]
     Active Substance: ALBUMIN HUMAN
     Indication: HEPATITIS C
  4. THYRADIN [Concomitant]
     Active Substance: LEVOTHYROXINE
  5. CORTRIL [Concomitant]
     Active Substance: HYDROCORTISONE
  6. AMINOLEBAN [Concomitant]
     Active Substance: AMINO ACIDS, SOURCE UNSPECIFIED
     Indication: HEPATITIS C
  7. EPCLUSA [Suspect]
     Active Substance: SOFOSBUVIR\VELPATASVIR
     Indication: HEPATITIS C
     Dosage: 1 DOSAGE FORM/DAY
     Route: 048
     Dates: start: 20190723, end: 20190909
  8. LANSOPRAZOLE. [Concomitant]
     Active Substance: LANSOPRAZOLE
  9. KREMEZIN [Concomitant]
     Active Substance: ACTIVATED CHARCOAL
  10. ALBUMIN [Concomitant]
     Active Substance: ALBUMIN HUMAN
     Indication: HEPATIC CIRRHOSIS
  11. ALDACTONE A [Concomitant]
     Active Substance: SPIRONOLACTONE
  12. AMINOLEBAN [Concomitant]
     Active Substance: AMINO ACIDS, SOURCE UNSPECIFIED
     Indication: HEPATIC CIRRHOSIS
  13. LASIX [Concomitant]
     Active Substance: FUROSEMIDE
  14. GLYCYRON [GLYCYRRHIZIC ACID, AMMONIUM SALT] [Concomitant]
  15. RIFXIMA [Concomitant]
     Active Substance: RIFAXIMIN
  16. CANDESARTAN. [Concomitant]
     Active Substance: CANDESARTAN
  17. PIARLE [Concomitant]
     Active Substance: LACTULOSE
  18. EPCLUSA [Suspect]
     Active Substance: SOFOSBUVIR\VELPATASVIR
     Indication: HEPATIC CIRRHOSIS
  19. SAMSCA [Concomitant]
     Active Substance: TOLVAPTAN

REACTIONS (3)
  - Hepatic encephalopathy [Recovered/Resolved]
  - Ascites [Unknown]
  - Cerebellar haemorrhage [Recovering/Resolving]

NARRATIVE: CASE EVENT DATE: 20190909
